FAERS Safety Report 7674521-2 (Version None)
Quarter: 2011Q3

REPORT INFORMATION
  Report Type: 
  Country: None (occurrence: None)
  Receive Date: 20110810
  Receipt Date: 20110728
  Transmission Date: 20111222
  Serious: Yes (Other)
  Sender: FDA-Public Use
  Company Number: PHHY2009BR05657

PATIENT
  Sex: Female

DRUGS (6)
  1. DIOVAN HCT [Suspect]
     Dosage: 2 DF,(160 MG OF VALS AND 12.5 MG OF HYD)
  2. VASTAREL ^BIOPHARMA^ [Concomitant]
     Dosage: 20 MG, QD
     Route: 048
     Dates: start: 20050101
  3. DIOVAN HCT [Suspect]
     Dosage: 1 DF, DAILY (320MG OF VAL;S AND 12.5 MG OF HYD)
     Route: 048
  4. ANGIPRESS [Concomitant]
     Indication: HEART RATE ABNORMAL
     Dosage: 25 MG, QD
     Route: 048
  5. ISOSORBIDE MONONITRATE [Concomitant]
     Dosage: 20 MG, QD
     Route: 048
     Dates: start: 20050101
  6. DIOVAN HCT [Suspect]
     Indication: HYPERTENSION
     Dosage: 80MG OF VALS AND 12.5 MG OF HYD
     Dates: start: 19990101

REACTIONS (4)
  - DIZZINESS [None]
  - HEPATIC STEATOSIS [None]
  - BLOOD PRESSURE FLUCTUATION [None]
  - THYROID DISORDER [None]
